FAERS Safety Report 16228830 (Version 1)
Quarter: 2019Q2

REPORT INFORMATION
  Report Type: Spontaneous
  Country: US (occurrence: US)
  Receive Date: 20190319
  Receipt Date: 20190319
  Transmission Date: 20190711
  Serious: No
  Sender: FDA-Public Use
  Company Number: None

PATIENT
  Age: 39 Year
  Sex: Female
  Weight: 78.47 kg

DRUGS (4)
  1. BENLYSTA [Suspect]
     Active Substance: BELIMUMAB
     Indication: NAUSEA
     Route: 058
     Dates: start: 201901
  2. BENLYSTA [Suspect]
     Active Substance: BELIMUMAB
     Indication: BACK PAIN
     Route: 058
     Dates: start: 201901
  3. BENLYSTA [Suspect]
     Active Substance: BELIMUMAB
     Indication: SYSTEMIC LUPUS ERYTHEMATOSUS
     Route: 058
     Dates: start: 201901
  4. BENLYSTA [Suspect]
     Active Substance: BELIMUMAB
     Indication: FIBROMYALGIA
     Route: 058
     Dates: start: 201901

REACTIONS (1)
  - Contusion [None]
